FAERS Safety Report 24458551 (Version 1)
Quarter: 2024Q4

REPORT INFORMATION
  Report Type: Spontaneous
  Country: IL (occurrence: IL)
  Receive Date: 20241018
  Receipt Date: 20241018
  Transmission Date: 20250114
  Serious: No
  Sender: ROCHE
  Company Number: IL-ROCHE-3520951

PATIENT
  Sex: Female

DRUGS (1)
  1. MABTHERA [Suspect]
     Active Substance: RITUXIMAB
     Indication: Cerebral amyloid angiopathy
     Route: 065
     Dates: start: 20240223

REACTIONS (2)
  - Off label use [Unknown]
  - No adverse event [Unknown]
